FAERS Safety Report 9003595 (Version 3)
Quarter: 2013Q1

REPORT INFORMATION
  Report Type: Report from Study
  Country: DE (occurrence: DE)
  Receive Date: 20130108
  Receipt Date: 20130124
  Transmission Date: 20140127
  Serious: Yes (Other)
  Sender: FDA-Public Use
  Company Number: DE-ROCHE-1177522

PATIENT
  Sex: Male

DRUGS (7)
  1. RANIBIZUMAB [Suspect]
     Indication: AGE-RELATED MACULAR DEGENERATION
     Route: 050
     Dates: start: 20110105
  2. RANIBIZUMAB [Suspect]
     Route: 050
     Dates: start: 20110202
  3. RANIBIZUMAB [Suspect]
     Route: 050
     Dates: start: 20110302
  4. RANIBIZUMAB [Suspect]
     Route: 050
     Dates: start: 20110413
  5. RANIBIZUMAB [Suspect]
     Route: 050
     Dates: start: 20111201
  6. RANIBIZUMAB [Suspect]
     Route: 050
     Dates: start: 20120127
  7. TIMOLOL [Concomitant]
     Dosage: 0.25%
     Route: 065

REACTIONS (5)
  - Retinal scar [Not Recovered/Not Resolved]
  - Macular scar [Unknown]
  - Detachment of retinal pigment epithelium [Recovered/Resolved]
  - Choroidal neovascularisation [Not Recovered/Not Resolved]
  - Macular oedema [Not Recovered/Not Resolved]
